FAERS Safety Report 5894289-X (Version None)
Quarter: 2008Q3

REPORT INFORMATION
  Report Type: 
  Country: None (occurrence: None)
  Receive Date: 20080923
  Receipt Date: 20080411
  Transmission Date: 20090109
  Serious: No
  Sender: FDA-Public Use
  Company Number: US-ASTRAZENECA-2008UW07517

PATIENT
  Age: 68 Year
  Sex: Female
  Weight: 77.1 kg

DRUGS (6)
  1. SEROQUEL [Suspect]
     Indication: DEPRESSION
     Route: 048
  2. SEROQUEL [Suspect]
     Indication: ANXIETY
     Route: 048
  3. SEROQUEL [Suspect]
     Indication: STRESS
     Route: 048
  4. GLYBURIDE [Concomitant]
  5. METFORMIN HCL [Concomitant]
  6. VYTORIN [Concomitant]

REACTIONS (6)
  - CATARACT [None]
  - DIABETES MELLITUS [None]
  - DRY MOUTH [None]
  - EYE DISORDER [None]
  - MOUTH HAEMORRHAGE [None]
  - SOMNOLENCE [None]
